FAERS Safety Report 24455098 (Version 2)
Quarter: 2024Q4

REPORT INFORMATION
  Report Type: Spontaneous
  Country: JP (occurrence: JP)
  Receive Date: 20241017
  Receipt Date: 20241018
  Transmission Date: 20250115
  Serious: No
  Sender: ROCHE
  Company Number: JP-ROCHE-3486649

PATIENT
  Age: 83 Year
  Sex: Female
  Weight: 36.0 kg

DRUGS (1)
  1. RITUXAN [Suspect]
     Active Substance: RITUXIMAB
     Indication: Collagen disorder
     Dosage: AT THE INFUSION RATE OF 20 MG/H (CONCENTRATION: 1 MG/CC)
     Route: 041

REACTIONS (2)
  - Depressed level of consciousness [Unknown]
  - Off label use [Unknown]
